FAERS Safety Report 21387887 (Version 1)
Quarter: 2022Q3

REPORT INFORMATION
  Report Type: Spontaneous
  Country: DE (occurrence: DE)
  Receive Date: 20220928
  Receipt Date: 20220928
  Transmission Date: 20221027
  Serious: Yes (Other)
  Sender: FDA-Public Use
  Company Number: DE-ASPEN-GLO2020DE011857

PATIENT
  Sex: Female

DRUGS (1)
  1. ROPIVACAINE HYDROCHLORIDE [Suspect]
     Active Substance: ROPIVACAINE HYDROCHLORIDE
     Indication: Epidural analgesia
     Dosage: UNK (SOLUTION, 4X 2 ML AMPULES WITHIN 3 HOURS)?ROA-20009000?1
     Dates: start: 20130116, end: 20130116

REACTIONS (2)
  - Encephalitis [None]
  - Meningitis Escherichia [None]
